FAERS Safety Report 23766128 (Version 7)
Quarter: 2024Q3

REPORT INFORMATION
  Report Type: Report from Study
  Country: US (occurrence: US)
  Receive Date: 20240421
  Receipt Date: 20240725
  Transmission Date: 20241016
  Serious: No
  Sender: ALEXION PHARMACEUTICALS
  Company Number: US-AstraZeneca-CH-00607110A

PATIENT
  Age: 77 Year
  Sex: Female

DRUGS (1)
  1. ULTOMIRIS [Suspect]
     Active Substance: RAVULIZUMAB-CWVZ
     Indication: Myasthenia gravis
     Dosage: UNK, Q56
     Route: 042
     Dates: start: 20240313

REACTIONS (4)
  - Upper respiratory tract infection [Recovering/Resolving]
  - Illness [Not Recovered/Not Resolved]
  - Vomiting [Unknown]
  - Asthenia [Not Recovered/Not Resolved]

NARRATIVE: CASE EVENT DATE: 20240411
